FAERS Safety Report 13924980 (Version 1)
Quarter: 2017Q3

REPORT INFORMATION
  Report Type: Not Available
  Country: SE (occurrence: SE)
  Receive Date: 20170831
  Receipt Date: 20170831
  Transmission Date: 20171127
  Serious: Yes (Death)
  Sender: FDA-Public Use
  Company Number: SE-ANIPHARMA-2017-SE-000012

PATIENT
  Age: 60 Year
  Sex: Female

DRUGS (5)
  1. CITALOPRAM [Suspect]
     Active Substance: CITALOPRAM HYDROBROMIDE
  2. LITHIUM CARBONATE (NON-SPECIFIC) [Suspect]
     Active Substance: LITHIUM
  3. PERPHENAZINE TABLETS USP [Concomitant]
     Active Substance: PERPHENAZINE
  4. LEVOMEPROMAZINE [Concomitant]
     Active Substance: LEVOMEPROMAZINE
  5. ALCOHOL. [Suspect]
     Active Substance: ALCOHOL

REACTIONS (8)
  - Pulmonary oedema [Fatal]
  - Death [Fatal]
  - Pulmonary congestion [Fatal]
  - Toxicity to various agents [Fatal]
  - Cardiomegaly [Fatal]
  - Arteriosclerosis [Fatal]
  - Thyroid cancer [Fatal]
  - Hypervolaemia [Fatal]
